FAERS Safety Report 6082914-2 (Version None)
Quarter: 2009Q1

REPORT INFORMATION
  Report Type: 
  Country: None (occurrence: None)
  Receive Date: 20090218
  Receipt Date: 20090210
  Transmission Date: 20090719
  Serious: Yes (Other)
  Sender: FDA-Public Use
  Company Number: SE-PFIZER INC-2008090601

PATIENT

DRUGS (1)
  1. DEPO-MEDROL [Suspect]
     Indication: SEASONAL ALLERGY

REACTIONS (1)
  - INJECTION SITE NECROSIS [None]
